FAERS Safety Report 4778263-2 (Version None)
Quarter: 2005Q3

REPORT INFORMATION
  Report Type: 
  Country: None (occurrence: None)
  Receive Date: 20050926
  Receipt Date: 20040820
  Transmission Date: 20060218
  Serious: No
  Sender: FDA-Public Use
  Company Number: US-BRISTOL-MYERS SQUIBB COMPANY-12678488

PATIENT
  Age: 38 Year
  Sex: Male

DRUGS (5)
  1. STADOL [Suspect]
     Indication: ABDOMINAL PAIN
     Route: 030
  2. STADOL [Suspect]
     Indication: FLANK PAIN
     Route: 030
  3. EFFEXOR [Concomitant]
  4. SEROQUEL [Concomitant]
  5. KEPPRA [Concomitant]

REACTIONS (1)
  - DRUG SCREEN FALSE POSITIVE [None]
